FAERS Safety Report 9372086 (Version 1)
Quarter: 2013Q2

REPORT INFORMATION
  Report Type: Spontaneous
  Country: ES (occurrence: None)
  Receive Date: 20130624
  Receipt Date: 20130624
  Transmission Date: 20140414
  Serious: Yes (Other)
  Sender: FDA-Public Use
  Company Number: 2013P1008817

PATIENT
  Sex: 0

DRUGS (2)
  1. RIFAMPIN [Suspect]
     Indication: TUBERCULOSIS
  2. ISONIAZID [Concomitant]

REACTIONS (1)
  - Drug reaction with eosinophilia and systemic symptoms [None]
